FAERS Safety Report 20837550 (Version 2)
Quarter: 2023Q1

REPORT INFORMATION
  Report Type: Spontaneous
  Country: US (occurrence: US)
  Receive Date: 20220517
  Receipt Date: 20230324
  Transmission Date: 20230418
  Serious: No
  Sender: FDA-Public Use
  Company Number: US-BIOGEN-2022BI01123364

PATIENT
  Sex: Male

DRUGS (1)
  1. TECFIDERA [Suspect]
     Active Substance: DIMETHYL FUMARATE
     Indication: Multiple sclerosis
     Route: 050
     Dates: start: 2022

REACTIONS (5)
  - Gait inability [Recovered/Resolved]
  - Pyrexia [Unknown]
  - Hyperhidrosis [Unknown]
  - Asthenia [Unknown]
  - Mobility decreased [Unknown]
